FAERS Safety Report 7715855-2 (Version None)
Quarter: 2011Q3

REPORT INFORMATION
  Report Type: 
  Country: None (occurrence: None)
  Receive Date: 20110829
  Receipt Date: 20110829
  Transmission Date: 20111222
  Serious: Yes (Hospitalization)
  Sender: FDA-Public Use
  Company Number: None

PATIENT
  Age: 36 Year
  Sex: Female
  Weight: 59.7 kg

DRUGS (1)
  1. LEVOFLOXACIN [Suspect]
     Indication: PYELONEPHRITIS
     Dosage: 750 MG
     Route: 042

REACTIONS (4)
  - DYSPNOEA [None]
  - THROAT TIGHTNESS [None]
  - HYPERSENSITIVITY [None]
  - PANIC ATTACK [None]
